FAERS Safety Report 6123646-1 (Version None)
Quarter: 2009Q1

REPORT INFORMATION
  Report Type: 
  Country: None (occurrence: None)
  Receive Date: 20090317
  Receipt Date: 20090309
  Transmission Date: 20090719
  Serious: Yes (Hospitalization)
  Sender: FDA-Public Use
  Company Number: 230128K09BRA

PATIENT
  Sex: Female

DRUGS (1)
  1. REBIF [Suspect]
     Dosage: 44 MCG, 3 IN 1 WEEKS
     Dates: start: 20070201

REACTIONS (4)
  - BLOOD PRESSURE FLUCTUATION [None]
  - CARDIOMEGALY [None]
  - GASTROINTESTINAL INFECTION [None]
  - RENAL ANEURYSM [None]
